FAERS Safety Report 13889685 (Version 1)
Quarter: 2017Q3

REPORT INFORMATION
  Report Type: Spontaneous
  Country: US (occurrence: US)
  Receive Date: 20170821
  Receipt Date: 20170821
  Transmission Date: 20171127
  Serious: No
  Sender: FDA-Public Use
  Company Number: None

PATIENT
  Age: 57 Year
  Sex: Female
  Weight: 65.25 kg

DRUGS (11)
  1. FISH OIL [Concomitant]
     Active Substance: FISH OIL
  2. ASHWAGANDHA [Concomitant]
     Active Substance: HERBALS
  3. VITAMIN K [Concomitant]
     Active Substance: PHYTONADIONE
  4. SERIPHOS [Concomitant]
  5. ALA [Concomitant]
  6. DESSICATED PORK THYROID [Concomitant]
  7. ARMOUR THYROID [Suspect]
     Active Substance: THYROID, PORCINE
     Indication: HYPOTHYROIDISM
     Dosage: ?          QUANTITY:1 ;?
     Route: 048
     Dates: start: 20170619, end: 20170731
  8. VITAMIN D [Concomitant]
     Active Substance: CHOLECALCIFEROL
  9. PREGNENALONE [Concomitant]
  10. VITAMIN C [Concomitant]
     Active Substance: ASCORBIC ACID
  11. STANDARD PROCESS CATAPLEX F [Concomitant]

REACTIONS (7)
  - Dysgeusia [None]
  - Product substitution issue [None]
  - Oral pain [None]
  - Heart rate abnormal [None]
  - Palpitations [None]
  - Glossodynia [None]
  - Lip pain [None]

NARRATIVE: CASE EVENT DATE: 20170731
